FAERS Safety Report 7253193 (Version 2)
Quarter: 2013Q4

REPORT INFORMATION
  Report Type: Spontaneous
  Country: US (occurrence: None)
  Receive Date: 20100113
  Receipt Date: 20131205
  Transmission Date: 20140711
  Serious: Yes (Hospitalization)
  Sender: FDA-Public Use
  Company Number: 2010S1000008

PATIENT
  Age: 53 Year
  Sex: Female

DRUGS (4)
  1. FLEET PHOSPHO-SODA [Suspect]
     Indication: COLONOSCOPY
     Dosage: PO
     Route: 048
     Dates: start: 20050614, end: 200506
  2. ESTRADIOL (ESTRADIOL) (2 MILLIGRAM) [Concomitant]
  3. ZESTORETIC (HYDROCHLOROTHIAZIDE, LISINOPRIL) [Concomitant]
  4. NEXIUM (ESOMEPRAZOLE MAGNESIUM) [Concomitant]

REACTIONS (11)
  - Injury [None]
  - Gastrooesophageal reflux disease [None]
  - Hiatus hernia [None]
  - Nausea [None]
  - Vomiting [None]
  - Diarrhoea [None]
  - Abdominal pain [None]
  - Colitis [None]
  - Renal failure acute [None]
  - Renal transplant [None]
  - Small intestinal obstruction [None]
